FAERS Safety Report 6877689-0 (Version None)
Quarter: 2010Q3

REPORT INFORMATION
  Report Type: 
  Country: None (occurrence: None)
  Receive Date: 20100727
  Receipt Date: 20100602
  Transmission Date: 20110219
  Serious: No
  Sender: FDA-Public Use
  Company Number: US-ABBOTT-10P-163-0649277-00

PATIENT
  Sex: Female

DRUGS (1)
  1. SYNTHROID [Suspect]
     Indication: HYPOTHYROIDISM
     Dates: start: 20000101

REACTIONS (4)
  - ABDOMINAL PAIN UPPER [None]
  - COELIAC DISEASE [None]
  - GASTROINTESTINAL INFLAMMATION [None]
  - INTESTINAL ISCHAEMIA [None]
